FAERS Safety Report 5534729-9 (Version None)
Quarter: 2007Q4

REPORT INFORMATION
  Report Type: 
  Country: None (occurrence: None)
  Receive Date: 20071205
  Receipt Date: 20071126
  Transmission Date: 20080405
  Serious: Yes (Other)
  Sender: FDA-Public Use
  Company Number: US-JNJFOC-20071006421

PATIENT
  Sex: Female

DRUGS (3)
  1. REMICADE [Suspect]
     Indication: RHEUMATOID ARTHRITIS
     Dosage: 3-4 YEARS
     Route: 042
  2. AZATHIOPRINE [Concomitant]
     Indication: RHEUMATOID ARTHRITIS
     Dosage: ADDITIONAL 2 YEARS
  3. PREDNISONE TAB [Concomitant]

REACTIONS (1)
  - SQUAMOUS CELL CARCINOMA [None]
